FAERS Safety Report 7018609-8 (Version None)
Quarter: 2010Q3

REPORT INFORMATION
  Report Type: 
  Country: None (occurrence: None)
  Receive Date: 20100924
  Receipt Date: 20100910
  Transmission Date: 20110219
  Serious: Yes (Hospitalization, Disabling, Other)
  Sender: FDA-Public Use
  Company Number: DSU-2010-04799

PATIENT
  Sex: Female

DRUGS (8)
  1. OLMESARTAN MEDOXOMIL AND HYDROCHLOROTHIZIDE [Suspect]
     Indication: HYPERTENSION
     Dosage: 40/12.5 MG (QD),PER ORAL
     Route: 048
     Dates: start: 20060101
  2. ENBREL [Suspect]
     Indication: RHEUMATOID ARTHRITIS
     Dosage: 50 MG (50 MG,Q WEEKLY),PER ORAL ; 50 MG (Q WEEKLY),PER ORAL
     Route: 048
     Dates: start: 20091001, end: 20091201
  3. ENBREL [Suspect]
     Indication: RHEUMATOID ARTHRITIS
     Dosage: 50 MG (50 MG,Q WEEKLY),PER ORAL ; 50 MG (Q WEEKLY),PER ORAL
     Route: 048
     Dates: start: 20100701, end: 20100901
  4. VASOTON (AESCULUS HIPPOCASTANUM) (TABLET) (AESCULUS HIPPOCASTANUM) [Suspect]
     Indication: VARICOSE VEIN
     Dosage: (300 MG),PER ORAL
     Route: 048
     Dates: start: 20100701, end: 20100701
  5. PREDNISOLONE (PREDNISOLONE) (TABLET) (PREDNISOLONE) [Concomitant]
  6. RANITIDINE (RANITIDINE) (RANITIDINE) [Concomitant]
  7. OMEPRAZOLE [Concomitant]
  8. METHOTREXATE [Concomitant]

REACTIONS (11)
  - BLOOD PRESSURE INCREASED [None]
  - CONDITION AGGRAVATED [None]
  - FEELING OF DESPAIR [None]
  - GAIT DISTURBANCE [None]
  - GASTRITIS [None]
  - HEADACHE [None]
  - RHEUMATOID ARTHRITIS [None]
  - THERAPY CESSATION [None]
  - TRANSAMINASES ABNORMAL [None]
  - URINARY TRACT INFECTION [None]
  - VARICOSE VEIN [None]
